FAERS Safety Report 18147480 (Version 1)
Quarter: 2020Q3

REPORT INFORMATION
  Report Type: Report from Study
  Country: US (occurrence: US)
  Receive Date: 20200813
  Receipt Date: 20200813
  Transmission Date: 20201103
  Serious: No
  Sender: FDA-Public Use
  Company Number: NVSC2020US222329

PATIENT
  Sex: Female

DRUGS (1)
  1. MAYZENT [Suspect]
     Active Substance: SIPONIMOD
     Indication: MULTIPLE SCLEROSIS
     Dosage: 2 MG, QD
     Route: 048

REACTIONS (7)
  - Incontinence [Unknown]
  - Product dose omission issue [Unknown]
  - Balance disorder [Unknown]
  - Limb discomfort [Unknown]
  - Movement disorder [Unknown]
  - Migraine [Unknown]
  - Somnolence [Unknown]
